FAERS Safety Report 13334902 (Version 4)
Quarter: 2017Q4

REPORT INFORMATION
  Report Type: Report from Study
  Country: BR (occurrence: BR)
  Receive Date: 20170314
  Receipt Date: 20171201
  Transmission Date: 20180320
  Serious: Yes (Hospitalization, Other)
  Sender: FDA-Public Use
  Company Number: BR-BAYER-2017-046549

PATIENT
  Age: 46 Year
  Sex: Female

DRUGS (7)
  1. TEGRETOL [Concomitant]
     Active Substance: CARBAMAZEPINE
     Dosage: 3 DF, QD
  2. ANGELIQ [Concomitant]
     Active Substance: DROSPIRENONE\ESTRADIOL
     Indication: HORMONE REPLACEMENT THERAPY
     Dosage: 1 DF, QD
  3. CRESTOR [Concomitant]
     Active Substance: ROSUVASTATIN CALCIUM
     Indication: HYPERCHOLESTEROLAEMIA
     Dosage: 1 DF, QD
     Dates: start: 2012
  4. SERTRALINE [Concomitant]
     Active Substance: SERTRALINE HYDROCHLORIDE
     Indication: DEPRESSION
     Dosage: 1 DF, QD
  5. BETAFERON [Suspect]
     Active Substance: INTERFERON BETA-1B
     Indication: MULTIPLE SCLEROSIS
     Dosage: 1 ML, BIW (AT SUNDAYS AND WEDNESDAYS)
     Dates: start: 200404, end: 201710
  6. EZETROL [Concomitant]
     Active Substance: EZETIMIBE
     Indication: HYPERCHOLESTEROLAEMIA
     Dosage: 1 DF, QD
     Dates: start: 2012
  7. ARNICA [Concomitant]
     Active Substance: ARNICA MONTANA FLOWER
     Indication: SOFT TISSUE DISORDER
     Dosage: AT INJECTION SITES

REACTIONS (16)
  - Injection site inflammation [Not Recovered/Not Resolved]
  - Chills [Not Recovered/Not Resolved]
  - Injection site erythema [Not Recovered/Not Resolved]
  - Injection site indentation [Not Recovered/Not Resolved]
  - Inappropriate prescribing [None]
  - Influenza like illness [Not Recovered/Not Resolved]
  - Injection site discolouration [Not Recovered/Not Resolved]
  - Osteonecrosis [Recovered/Resolved]
  - Pain [Not Recovered/Not Resolved]
  - Inappropriate schedule of drug administration [None]
  - Injection site mass [Not Recovered/Not Resolved]
  - Injection site nodule [Not Recovered/Not Resolved]
  - Feeling abnormal [None]
  - Injection site necrosis [None]
  - Injection site pain [Not Recovered/Not Resolved]
  - Injection site haematoma [Not Recovered/Not Resolved]

NARRATIVE: CASE EVENT DATE: 2004
